FAERS Safety Report 7212949-5 (Version None)
Quarter: 2011Q1

REPORT INFORMATION
  Report Type: 
  Country: None (occurrence: None)
  Receive Date: 20110106
  Receipt Date: 20101229
  Transmission Date: 20110831
  Serious: Yes (Hospitalization)
  Sender: FDA-Public Use
  Company Number: BR-ASTRAZENECA-2010SE61432

PATIENT
  Age: 41 Year
  Sex: Male
  Weight: 104 kg

DRUGS (6)
  1. SYMBICORT [Suspect]
     Dosage: 320/9 MCG
     Route: 055
     Dates: start: 20100101
  2. EZETROL [Concomitant]
     Indication: ISCHAEMIC HEART DISEASE PROPHYLAXIS
     Dates: start: 20020101
  3. FOLIC ACID [Concomitant]
     Indication: ISCHAEMIC HEART DISEASE PROPHYLAXIS
     Dates: start: 20020101
  4. SYMBICORT [Suspect]
     Indication: ASTHMA
     Dosage: 320/9 MCG
     Route: 055
     Dates: start: 19980101, end: 20070101
  5. ASS INFANTIL [Concomitant]
     Indication: ISCHAEMIC HEART DISEASE PROPHYLAXIS
     Dates: start: 20020101
  6. CRESTOR [Suspect]
     Indication: ISCHAEMIC HEART DISEASE PROPHYLAXIS
     Route: 048
     Dates: start: 20020101

REACTIONS (2)
  - MYOCARDIAL INFARCTION [None]
  - HYPERSENSITIVITY [None]
